FAERS Safety Report 23193423 (Version 1)
Quarter: 2023Q4

REPORT INFORMATION
  Report Type: Spontaneous
  Country: US (occurrence: None)
  Receive Date: 20231115
  Receipt Date: 20231115
  Transmission Date: 20240109
  Serious: Yes (Hospitalization)
  Sender: FDA-Public Use
  Company Number: None

PATIENT
  Sex: Male

DRUGS (7)
  1. OPSUMIT [Suspect]
     Active Substance: MACITENTAN
     Dosage: FREQUENCY : DAILY;?
     Route: 048
     Dates: start: 202309
  2. SODIUM CHLOR INJ [Concomitant]
  3. HEPARIN L/F SYR [Concomitant]
  4. OFEV [Concomitant]
  5. NORMAL SALINE FLUSH [Concomitant]
  6. EPOPROSTENOL SDV G-VELETRI [Concomitant]
  7. SILDENAFIL CITRATE [Concomitant]

REACTIONS (8)
  - Nasal congestion [None]
  - Complication associated with device [None]
  - Rhinorrhoea [None]
  - Epistaxis [None]
  - Back pain [None]
  - Fatigue [None]
  - Decreased appetite [None]
  - Haemoglobin decreased [None]
